FAERS Safety Report 22637187 (Version 1)
Quarter: 2023Q2

REPORT INFORMATION
  Report Type: Spontaneous
  Country: US (occurrence: None)
  Receive Date: 20230621
  Receipt Date: 20230621
  Transmission Date: 20230722
  Serious: Yes (Hospitalization)
  Sender: FDA-Public Use
  Company Number: None

PATIENT
  Age: 10 Year
  Sex: Female

DRUGS (3)
  1. STIMATE [Suspect]
     Active Substance: DESMOPRESSIN ACETATE
     Indication: Von Willebrand^s disease
     Dosage: 1.5 MG/ML NASAL??SPRAY 1 SPRAY BY NASAL ROUTE AS NEEDED (ONCE IN 24 HOUR PERIOD FOR MUCOSAL BLEEDIN
     Route: 045
     Dates: start: 20180815
  2. STIMATE [Suspect]
     Active Substance: DESMOPRESSIN ACETATE
     Dosage: OTHER QUANTITY : 1 SPRAY BY NASAL;?FREQUENCY : AS DIRECTED;?
     Route: 045
  3. SINGULAIR [Concomitant]
     Active Substance: MONTELUKAST SODIUM

REACTIONS (1)
  - Gastroenteritis viral [None]

NARRATIVE: CASE EVENT DATE: 20230501
